FAERS Safety Report 16471109 (Version 1)
Quarter: 2019Q2

REPORT INFORMATION
  Report Type: Spontaneous
  Country: US (occurrence: US)
  Receive Date: 20190624
  Receipt Date: 20190624
  Transmission Date: 20190711
  Serious: Yes (Other)
  Sender: FDA-Public Use
  Company Number: US-TEVA-2019-US-1065865

PATIENT
  Sex: Female

DRUGS (1)
  1. COPAXONE [Suspect]
     Active Substance: GLATIRAMER ACETATE
     Indication: MULTIPLE SCLEROSIS
     Dates: start: 201901, end: 201906

REACTIONS (7)
  - Dyspnoea [Unknown]
  - Injection site reaction [Unknown]
  - Injection site joint pain [Unknown]
  - Body temperature increased [Unknown]
  - Multiple sclerosis [Unknown]
  - Heart rate increased [Unknown]
  - Drug ineffective [Unknown]
